FAERS Safety Report 8975169 (Version 1)
Quarter: 2012Q4

REPORT INFORMATION
  Report Type: 
  Country: US (occurrence: US)
  Receive Date: 20121219
  Receipt Date: 20121219
  Transmission Date: 20130627
  Serious: No
  Sender: FDA-Public Use
  Company Number: US-AMGEN-USASP2012075277

PATIENT
  Age: 57 Year
  Sex: Female

DRUGS (6)
  1. PROLIA [Suspect]
     Indication: OSTEOPOROSIS POSTMENOPAUSAL
     Dosage: UNK
     Dates: start: 201208
  2. LEXAPRO [Concomitant]
     Dosage: UNK
  3. LORAZEPAM [Concomitant]
  4. VAGIFEM [Concomitant]
  5. MULTIVITAMIN                       /00097801/ [Concomitant]
  6. EPIPEN [Concomitant]
     Dosage: UNK

REACTIONS (5)
  - Dental discomfort [Unknown]
  - Sinus headache [Unknown]
  - Tooth disorder [Unknown]
  - Aphthous stomatitis [Recovered/Resolved]
  - Toothache [Unknown]
